FAERS Safety Report 5192438-2 (Version None)
Quarter: 2006Q4

REPORT INFORMATION
  Report Type: 
  Country: None (occurrence: None)
  Receive Date: 20061220
  Receipt Date: 20061208
  Transmission Date: 20070319
  Serious: Yes (Other)
  Sender: FDA-Public Use
  Company Number: 2006150946

PATIENT
  Age: 54 Year
  Sex: Female

DRUGS (2)
  1. CHANTIX [Suspect]
     Indication: SMOKING CESSATION THERAPY
     Dosage: 2 MG (1 MG, 2 IN 1 D)
     Dates: start: 20061106, end: 20061127
  2. ZOCOR [Concomitant]

REACTIONS (8)
  - ANAEMIA [None]
  - BLOOD CHLORIDE INCREASED [None]
  - BRAIN NATRIURETIC PEPTIDE INCREASED [None]
  - FIBRIN D DIMER INCREASED [None]
  - JOINT SWELLING [None]
  - OEDEMA PERIPHERAL [None]
  - PLEURAL EFFUSION [None]
  - WEIGHT INCREASED [None]
